FAERS Safety Report 4383271-X (Version None)
Quarter: 2004Q2

REPORT INFORMATION
  Report Type: 
  Country: None (occurrence: None)
  Receive Date: 20040618
  Receipt Date: 20040603
  Transmission Date: 20050107
  Serious: Yes (Other)
  Sender: FDA-Public Use
  Company Number: S04-SWE-02570-01

PATIENT
  Age: 68 Year
  Sex: Male

DRUGS (4)
  1. EBIXA (MEMANTINE) [Suspect]
     Indication: DEMENTIA ALZHEIMER'S TYPE
     Dosage: 10 MG QD PO
     Route: 048
     Dates: start: 20021126, end: 20021214
  2. EBIXA (MEMENTINE) [Suspect]
     Indication: DEMENTIA ALZHEIMER'S TYPE
     Dosage: 5 MG QD PO
     Route: 048
  3. LOGIMAX [Concomitant]
  4. EXELON (RIVASTAGMINE TARTRATE) [Concomitant]

REACTIONS (6)
  - ANKLE FRACTURE [None]
  - CARDIAC FIBRILLATION [None]
  - CHEST PAIN [None]
  - EPILEPSY [None]
  - HAEMANGIOMA [None]
  - LUNG CONSOLIDATION [None]
